FAERS Safety Report 7106149-7 (Version None)
Quarter: 2010Q4

REPORT INFORMATION
  Report Type: 
  Country: None (occurrence: None)
  Receive Date: 20101116
  Receipt Date: 20101111
  Transmission Date: 20110411
  Serious: Yes (Other)
  Sender: FDA-Public Use
  Company Number: US-PFIZER INC-2010128845

PATIENT
  Sex: Female
  Weight: 52.154 kg

DRUGS (4)
  1. TOVIAZ [Suspect]
     Indication: HYPERTONIC BLADDER
     Dosage: 4 MG, 1X/DAY
     Route: 048
     Dates: start: 20100901, end: 20101001
  2. TOVIAZ [Suspect]
     Dosage: 8 MG, 1X/DAY
     Route: 048
     Dates: start: 20101002
  3. OXYBUTYNIN HYDROCHLORIDE [Suspect]
     Dosage: UNK
  4. ANASTROZOLE [Concomitant]
     Dosage: UNK

REACTIONS (4)
  - DRUG INEFFECTIVE [None]
  - DRUG TOLERANCE INCREASED [None]
  - MICTURITION URGENCY [None]
  - URINARY INCONTINENCE [None]
